FAERS Safety Report 7932251-3 (Version None)
Quarter: 2011Q4

REPORT INFORMATION
  Report Type: 
  Country: None (occurrence: None)
  Receive Date: 20111121
  Receipt Date: 20110502
  Transmission Date: 20120403
  Serious: No
  Sender: FDA-Public Use
  Company Number: US-AMGEN-USASP2011022833

PATIENT
  Age: 65 Year
  Sex: Female

DRUGS (1)
  1. VECTIBIX [Suspect]
     Indication: COLON CANCER METASTATIC
     Dosage: UNK

REACTIONS (4)
  - SKIN FISSURES [None]
  - SWELLING [None]
  - PAIN IN EXTREMITY [None]
  - HAEMORRHAGE [None]
